FAERS Safety Report 6464264-5 (Version None)
Quarter: 2009Q4

REPORT INFORMATION
  Report Type: 
  Country: None (occurrence: None)
  Receive Date: 20091112
  Receipt Date: 20090203
  Transmission Date: 20100525
  Serious: Yes (Other)
  Sender: FDA-Public Use
  Company Number: WWISSUE-259

PATIENT
  Age: 8 Year
  Sex: Male

DRUGS (1)
  1. AMINOPHYLLINE [Suspect]
     Indication: LUNG DISORDER
     Dosage: 1/2 TABLET 2 X A DAY
     Dates: start: 20081218, end: 20090114

REACTIONS (1)
  - AGITATION [None]
